FAERS Safety Report 4300347-3 (Version None)
Quarter: 2004Q1

REPORT INFORMATION
  Report Type: 
  Country: None (occurrence: None)
  Receive Date: 20040218
  Receipt Date: 20040206
  Transmission Date: 20041129
  Serious: Yes (Hospitalization)
  Sender: FDA-Public Use
  Company Number: 2004003451

PATIENT
  Age: 51 Year
  Sex: Female

DRUGS (3)
  1. ZITHROMAX [Suspect]
     Indication: UPPER RESPIRATORY TRACT INFLAMMATION
     Dosage: 500 MG (DAILY) ORAL
     Route: 048
     Dates: start: 20040109, end: 20040109
  2. MINIPRESS [Suspect]
     Indication: HYPERTENSION
     Dosage: 1 MG DAILY ORAL
     Route: 048
  3. AMBROXOL HYDROCHLORIDE [Concomitant]

REACTIONS (9)
  - ANAPHYLACTIC SHOCK [None]
  - BLOOD PRESSURE DECREASED [None]
  - BLOOD PRESSURE INCREASED [None]
  - C-REACTIVE PROTEIN INCREASED [None]
  - DYSPNOEA [None]
  - OXYGEN SATURATION DECREASED [None]
  - PYREXIA [None]
  - TRACHEAL OEDEMA [None]
  - WHITE BLOOD CELL COUNT INCREASED [None]
